FAERS Safety Report 8501635-7 (Version None)
Quarter: 2012Q3

REPORT INFORMATION
  Report Type: 
  Country: None (occurrence: None)
  Receive Date: 20120711
  Receipt Date: 20120706
  Transmission Date: 20120928
  Serious: Yes (Other)
  Sender: FDA-Public Use
  Company Number: US-AMGEN-USASP2012042041

PATIENT
  Age: 71 Year
  Sex: Female

DRUGS (2)
  1. HUMIRA [Concomitant]
     Dosage: UNK
  2. ENBREL [Suspect]
     Indication: PSORIATIC ARTHROPATHY
     Dosage: 50 MG, QWK
     Dates: start: 20000801

REACTIONS (14)
  - FATIGUE [None]
  - BURNING SENSATION [None]
  - BACK PAIN [None]
  - ALOPECIA [None]
  - FALL [None]
  - INJECTION SITE PAIN [None]
  - DYSPNOEA [None]
  - SKIN ODOUR ABNORMAL [None]
  - THYROID NEOPLASM [None]
  - SQUAMOUS CELL CARCINOMA OF SKIN [None]
  - SKIN DISCOLOURATION [None]
  - DIZZINESS [None]
  - FRACTURED SACRUM [None]
  - APPLICATION SITE PAIN [None]
